FAERS Safety Report 23659607 (Version 11)
Quarter: 2025Q2

REPORT INFORMATION
  Report Type: Spontaneous
  Country: US (occurrence: US)
  Receive Date: 20240321
  Receipt Date: 20250523
  Transmission Date: 20250717
  Serious: Yes (Life-Threatening, Other)
  Sender: BIOGEN
  Company Number: US-BIOGEN-2024BI01255936

PATIENT
  Age: 48 Year
  Sex: Male

DRUGS (4)
  1. SKYCLARYS [Suspect]
     Active Substance: OMAVELOXOLONE
     Indication: Friedreich^s ataxia
     Route: 050
     Dates: start: 20230704
  2. SKYCLARYS [Suspect]
     Active Substance: OMAVELOXOLONE
     Route: 050
     Dates: start: 20230704, end: 202410
  3. GABAPENTIN [Suspect]
     Active Substance: GABAPENTIN
     Indication: Neuralgia
     Route: 050
  4. LASIX [Concomitant]
     Active Substance: FUROSEMIDE
     Indication: Fluid retention
     Route: 050

REACTIONS (6)
  - Cardiac disorder [Unknown]
  - Atrial fibrillation [Unknown]
  - Cardiovascular symptom [Unknown]
  - Neuralgia [Unknown]
  - Mood altered [Unknown]
  - Hypertension [Unknown]

NARRATIVE: CASE EVENT DATE: 20230704
